FAERS Safety Report 10543196 (Version 1)
Quarter: 2014Q4

REPORT INFORMATION
  Report Type: Spontaneous
  Country: BR (occurrence: BR)
  Receive Date: 20141027
  Receipt Date: 20141027
  Transmission Date: 20150529
  Serious: Yes (Other)
  Sender: FDA-Public Use
  Company Number: BR-ABBVIE-14P-020-1300297-00

PATIENT
  Age: 67 Year
  Sex: Female
  Weight: 53.5 kg

DRUGS (3)
  1. ALL OTHER THERAPEUTIC PRODUCTS [Concomitant]
     Active Substance: UNSPECIFIED INGREDIENT
     Indication: PRODUCT USED FOR UNKNOWN INDICATION
  2. DEPAKOTE ER [Suspect]
     Active Substance: DIVALPROEX SODIUM
     Indication: SEIZURE
     Dosage: DAILY DOSE: 500MG AT NIGHT
     Route: 048
     Dates: start: 20141003, end: 20141012
  3. DEPAKOTE ER [Suspect]
     Active Substance: DIVALPROEX SODIUM
     Indication: SEIZURE
     Dosage: DAILY DOSE: 250 MG IN THE MORNING
     Route: 048
     Dates: start: 20141003, end: 20141012

REACTIONS (12)
  - Vascular pain [Recovered/Resolved]
  - Eye swelling [Recovered/Resolved]
  - Sciatica [Recovered/Resolved]
  - Vision blurred [Recovered/Resolved]
  - Sedation [Unknown]
  - Pain in extremity [Recovered/Resolved]
  - Dizziness [Unknown]
  - Varicose vein [Unknown]
  - Cataract [Unknown]
  - Back pain [Recovered/Resolved]
  - Headache [Recovered/Resolved]
  - Nausea [Recovered/Resolved]

NARRATIVE: CASE EVENT DATE: 201410
